FAERS Safety Report 4356262-2 (Version None)
Quarter: 2004Q2

REPORT INFORMATION
  Report Type: 
  Country: None (occurrence: None)
  Receive Date: 20040511
  Receipt Date: 20040423
  Transmission Date: 20050107
  Serious: Yes (Death, Other)
  Sender: FDA-Public Use
  Company Number: JP-SHR-03-015504

PATIENT
  Age: 54 Year
  Sex: Male
  Weight: 53.2 kg

DRUGS (19)
  1. FLUDARA [Suspect]
     Indication: CHRONIC LYMPHOCYTIC LEUKAEMIA
     Dosage: 30 MG, CYCLE X 5D, IV DRIP
     Route: 041
     Dates: start: 20021101, end: 20021105
  2. FLUDARA [Suspect]
     Indication: CHRONIC LYMPHOCYTIC LEUKAEMIA
     Dosage: 30 MG, CYCLE X 5D, IV DRIP
     Route: 041
     Dates: start: 20021202, end: 20021206
  3. FLUDARA [Suspect]
     Indication: CHRONIC LYMPHOCYTIC LEUKAEMIA
     Dosage: 30 MG, CYCLE X 5D, IV DRIP
     Route: 041
     Dates: start: 20030106, end: 20030107
  4. FLUDARA [Suspect]
     Indication: CHRONIC LYMPHOCYTIC LEUKAEMIA
     Dosage: 30 MG, CYCLE X 5D, IV DRIP
     Route: 041
     Dates: start: 20030203, end: 20030207
  5. FLUDARA [Suspect]
     Indication: CHRONIC LYMPHOCYTIC LEUKAEMIA
     Dosage: 30 MG, CYCLE X 5D, IV DRIP
     Route: 041
     Dates: start: 20030303, end: 20030307
  6. FLUDARA [Suspect]
     Indication: CHRONIC LYMPHOCYTIC LEUKAEMIA
     Dosage: 30 MG, CYCLE X 5D, IV DRIP
     Route: 041
     Dates: start: 20030331, end: 20030404
  7. FLUDARA [Suspect]
     Indication: CHRONIC LYMPHOCYTIC LEUKAEMIA
     Dosage: 30 MG, CYCLE X 5D, IV DRIP
     Route: 041
     Dates: start: 20030428, end: 20030506
  8. ZANTAC [Concomitant]
  9. SELBEX (TEPRENONE) [Concomitant]
  10. FUNGIZONE [Concomitant]
  11. MIYARISAN BM (MIYARI BACTERIA) [Concomitant]
  12. BAKTAR [Concomitant]
  13. ALLOPURINOL TAB [Concomitant]
  14. PURSENNID (SENNA LEAF) [Concomitant]
  15. LEVOFLOXACIN [Concomitant]
  16. HI-PEN (PHENOXYMETHYLPENICILLIN POTASSIUM) [Concomitant]
  17. ACETAMINOPHEN [Concomitant]
  18. MEDICON (DEXTROMETHORPHAN HYDROBROMIDE) [Concomitant]
  19. DASEN (SERRAPEPTASE) [Concomitant]

REACTIONS (24)
  - ANAEMIA [None]
  - BLOOD FIBRINOGEN DECREASED [None]
  - BLOOD PRESSURE DECREASED [None]
  - C-REACTIVE PROTEIN INCREASED [None]
  - EPSTEIN-BARR VIRUS INFECTION [None]
  - HAEMODIALYSIS [None]
  - HEART RATE DECREASED [None]
  - HEPATIC FAILURE [None]
  - HEPATIC FUNCTION ABNORMAL [None]
  - HEPATIC HAEMORRHAGE [None]
  - HEPATITIS FULMINANT [None]
  - HEPATOSPLENOMEGALY [None]
  - HISTIOCYTOSIS HAEMATOPHAGIC [None]
  - LYMPHOCYTE COUNT DECREASED [None]
  - PANCYTOPENIA [None]
  - PYREXIA [None]
  - RASH [None]
  - RENAL DISORDER [None]
  - RENAL FAILURE ACUTE [None]
  - RETICULOENDOTHELIAL SYSTEM STIMULATED [None]
  - SPLENIC INFARCTION [None]
  - STOMATITIS [None]
  - UPPER RESPIRATORY TRACT INFLAMMATION [None]
  - VIRAL INFECTION [None]
